FAERS Safety Report 18410858 (Version 1)
Quarter: 2020Q4

REPORT INFORMATION
  Report Type: Spontaneous
  Country: US (occurrence: US)
  Receive Date: 20201021
  Receipt Date: 20201021
  Transmission Date: 20210114
  Serious: Yes (Life-Threatening, Hospitalization)
  Sender: FDA-Public Use
  Company Number: US-PFIZER INC-2020406558

PATIENT
  Age: 35 Year
  Sex: Male

DRUGS (4)
  1. SUCCINYLCHOLINE CHLORIDE. [Suspect]
     Active Substance: SUCCINYLCHOLINE CHLORIDE
     Indication: ENDOTRACHEAL INTUBATION
     Dosage: 40 MG (REMAINING 40 MG)
     Route: 040
  2. ETOMIDATE. [Concomitant]
     Active Substance: ETOMIDATE
     Indication: HEAD INJURY
     Dosage: 20 MG
     Route: 042
  3. SUCCINYLCHOLINE CHLORIDE. [Suspect]
     Active Substance: SUCCINYLCHOLINE CHLORIDE
     Indication: HEAD INJURY
     Dosage: 160 MG
     Route: 042
  4. ETOMIDATE. [Concomitant]
     Active Substance: ETOMIDATE
     Indication: ENDOTRACHEAL INTUBATION
     Dosage: UNK MG (IV BOLUS)
     Route: 042

REACTIONS (1)
  - Muscle rigidity [Unknown]
